FAERS Safety Report 6817531-7 (Version None)
Quarter: 2010Q3

REPORT INFORMATION
  Report Type: 
  Country: None (occurrence: None)
  Receive Date: 20100706
  Receipt Date: 20100701
  Transmission Date: 20110219
  Serious: Yes (Other)
  Sender: FDA-Public Use
  Company Number: B0650857A

PATIENT
  Sex: Female

DRUGS (5)
  1. DERMOVATE [Suspect]
     Indication: ECZEMA
     Route: 058
     Dates: start: 20090501, end: 20100419
  2. MIRTAZAPINE [Concomitant]
     Indication: DEPRESSION
     Dosage: 15MG PER DAY
     Route: 065
     Dates: start: 20050101
  3. BECLOMETHASONE DIPROPIONATE [Concomitant]
     Indication: SINUSITIS
     Route: 045
     Dates: start: 20080101
  4. LOSEC MUPS [Concomitant]
     Indication: PRODUCT USED FOR UNKNOWN INDICATION
     Dosage: 20MG TWICE PER DAY
     Dates: start: 20020101
  5. SALMETEROL [Concomitant]
     Indication: CHRONIC OBSTRUCTIVE PULMONARY DISEASE
     Dosage: 50MG TWICE PER DAY
     Dates: start: 19980101

REACTIONS (2)
  - PRURITUS [None]
  - PSORIASIS [None]
